FAERS Safety Report 8097003-5 (Version None)
Quarter: 2012Q1

REPORT INFORMATION
  Report Type: 
  Country: None (occurrence: None)
  Receive Date: 20120129
  Receipt Date: 20111205
  Transmission Date: 20120608
  Serious: No
  Sender: FDA-Public Use
  Company Number: US-ABBOTT-11P-163-0880835-00

PATIENT
  Sex: Female

DRUGS (3)
  1. NAPROXEN (ALEVE) [Concomitant]
     Indication: HYPERSENSITIVITY
  2. HUMIRA [Suspect]
     Indication: PSORIASIS
     Route: 058
     Dates: start: 20111123
  3. NASONEX [Concomitant]
     Indication: HYPERSENSITIVITY

REACTIONS (1)
  - RASH [None]
